FAERS Safety Report 8350594-9 (Version None)
Quarter: 2012Q2

REPORT INFORMATION
  Report Type: 
  Country: None (occurrence: None)
  Receive Date: 20120510
  Receipt Date: 20120507
  Transmission Date: 20120825
  Serious: Yes (Hospitalization)
  Sender: FDA-Public Use
  Company Number: US-MERCK-1205USA00877

PATIENT
  Age: 72 Year
  Sex: Male

DRUGS (2)
  1. VYTORIN [Suspect]
     Route: 048
  2. METFORMIN HCL [Suspect]
     Route: 065

REACTIONS (1)
  - ADVERSE EVENT [None]
